FAERS Safety Report 5654768-7 (Version None)
Quarter: 2008Q1

REPORT INFORMATION
  Report Type: 
  Country: None (occurrence: None)
  Receive Date: 20080307
  Receipt Date: 20080124
  Transmission Date: 20080703
  Serious: No
  Sender: FDA-Public Use
  Company Number: A0620884A

PATIENT
  Sex: Male
  Weight: 75 kg

DRUGS (4)
  1. REQUIP [Suspect]
     Indication: PARKINSON'S DISEASE
     Dosage: 8MG THREE TIMES PER DAY
     Route: 048
     Dates: start: 20040401, end: 20050101
  2. MIRAPEX [Suspect]
     Indication: PARKINSON'S DISEASE
     Route: 065
     Dates: start: 19990101, end: 20040401
  3. STALEVO 100 [Concomitant]
     Dosage: 100MG THREE TIMES PER DAY
     Dates: start: 20040301
  4. SINEMET [Concomitant]
     Route: 048
     Dates: start: 19981201, end: 20040301

REACTIONS (4)
  - DELUSION [None]
  - EATING DISORDER [None]
  - PATHOLOGICAL GAMBLING [None]
  - SOMNOLENCE [None]
